FAERS Safety Report 4711876-2 (Version None)
Quarter: 2005Q2

REPORT INFORMATION
  Report Type: 
  Country: None (occurrence: None)
  Receive Date: 20050629
  Receipt Date: 20050404
  Transmission Date: 20051028
  Serious: No
  Sender: FDA-Public Use
  Company Number: 05P-163-0296152-00

PATIENT
  Age: 69 Year
  Sex: Female

DRUGS (15)
  1. HUMIRA [Suspect]
     Indication: RHEUMATOID ARTHRITIS
     Dosage: 40 MG, 1 IN 2 WK, SUBCUTANEOUS
     Route: 058
     Dates: start: 20030101
  2. SULFASALAZINE [Concomitant]
  3. BISOPROLOL [Concomitant]
  4. LEVOTHYROXINE SODIUM [Concomitant]
  5. ALPRAZOLAM [Concomitant]
  6. LOVASTATIN [Concomitant]
  7. DICLOFENAC SODIUM [Concomitant]
  8. ROSIGLITAZONE MALEATE [Concomitant]
  9. FOLIC ACID [Concomitant]
  10. CALCIUM CARBONATE [Concomitant]
  11. ESOMEPRAZOLE [Concomitant]
  12. INDOMETHACIN [Concomitant]
  13. CARISOPRODOL [Concomitant]
  14. ASPIRIN [Concomitant]
  15. CLOPIDOGREL BISULFATE [Concomitant]

REACTIONS (1)
  - TREMOR [None]
